FAERS Safety Report 4408755-7 (Version None)
Quarter: 2004Q3

REPORT INFORMATION
  Report Type: 
  Country: None (occurrence: None)
  Receive Date: 20040727
  Receipt Date: 20040423
  Transmission Date: 20050211
  Serious: Yes (Death, Hospitalization)
  Sender: FDA-Public Use
  Company Number: 200411691FR

PATIENT
  Age: 26 Year
  Sex: Male

DRUGS (7)
  1. FLAGYL [Suspect]
     Dosage: DOSE: 1-1-1; DOSE UNIT: UNITS
     Route: 048
     Dates: start: 19991112, end: 19991112
  2. ALCOHOL [Suspect]
  3. TERCIAN [Concomitant]
  4. IMOVANE [Concomitant]
  5. ZYPREXA [Concomitant]
  6. HALDOL [Concomitant]
  7. TEGRETOL [Concomitant]

REACTIONS (1)
  - PULMONARY OEDEMA [None]
